FAERS Safety Report 24441056 (Version 1)
Quarter: 2024Q4

REPORT INFORMATION
  Report Type: Spontaneous
  Country: IT (occurrence: IT)
  Receive Date: 20241016
  Receipt Date: 20241016
  Transmission Date: 20250115
  Serious: Yes (Hospitalization, Other)
  Sender: AUROBINDO
  Company Number: IT-MINISAL02-1004830

PATIENT
  Weight: 76 kg

DRUGS (3)
  1. OXALIPLATIN [Suspect]
     Active Substance: OXALIPLATIN
     Indication: Gastric cancer
     Dosage: 85 MILLIGRAM/SQ. METER (85MG/MQ Q15GG)
     Route: 042
     Dates: start: 20240626, end: 20240930
  2. FLUOROURACIL [Suspect]
     Active Substance: FLUOROURACIL
     Indication: Gastric cancer
     Dosage: 400MG/MQ BOLO E 2400 MG/MQ INFUSIONE CONTINUA Q15GG
     Route: 042
     Dates: start: 20240716, end: 20240930
  3. NIVOLUMAB [Suspect]
     Active Substance: NIVOLUMAB
     Indication: Gastric cancer
     Dosage: 240 MILLIGRAM (240MG Q15GG)
     Route: 042
     Dates: start: 20240716, end: 20240716

REACTIONS (2)
  - Immune thrombocytopenia [Recovered/Resolved]
  - Skin exfoliation [Recovered/Resolved]

NARRATIVE: CASE EVENT DATE: 20240729
